FAERS Safety Report 5034124-5 (Version None)
Quarter: 2006Q2

REPORT INFORMATION
  Report Type: 
  Country: None (occurrence: None)
  Receive Date: 20060626
  Receipt Date: 20021210
  Transmission Date: 20061013
  Serious: Yes (Other)
  Sender: FDA-Public Use
  Company Number: JP-AVENTIS-200221733GDDC

PATIENT
  Sex: Female

DRUGS (13)
  1. PREVACID [Suspect]
     Indication: GASTRIC DISORDER
     Dosage: DOSE: UNK
     Route: 048
     Dates: start: 19980206
  2. PREDNISONE [Suspect]
     Route: 048
     Dates: start: 20010901
  3. COUMADIN [Suspect]
     Route: 048
  4. SINGULAIR [Suspect]
     Route: 048
  5. POTASSIUM [Suspect]
     Route: 048
  6. DICYCLOMINE [Suspect]
     Route: 048
  7. PROMETHAZINE [Suspect]
     Route: 048
  8. FUROSEMIDE [Suspect]
     Route: 048
  9. ATROVENT [Suspect]
     Dosage: DOSE: UNK
     Route: 055
  10. ALBUTEROL [Suspect]
     Dosage: DOSE: UNK
     Route: 055
  11. SEREVENT [Suspect]
     Dosage: DOSE: UNK
     Route: 048
  12. FLOVENT [Suspect]
     Dosage: DOSE: UNK
     Route: 055
  13. VOLMAX [Suspect]
     Dosage: DOSE: UNK
     Dates: start: 20021203

REACTIONS (2)
  - DRUG INTERACTION [None]
  - HAEMOLYTIC ANAEMIA [None]
